FAERS Safety Report 5196269-9 (Version None)
Quarter: 2006Q4

REPORT INFORMATION
  Report Type: 
  Country: None (occurrence: None)
  Receive Date: 20061222
  Receipt Date: 20061211
  Transmission Date: 20070319
  Serious: Yes (Hospitalization)
  Sender: FDA-Public Use
  Company Number: 2006152538

PATIENT
  Age: 49 Year
  Sex: Male

DRUGS (2)
  1. PHENYTOIN [Suspect]
     Dosage: 300 MG (300 MG, 1 IN 1 D), ORAL
     Route: 048
  2. CIPROFLOXACIN [Concomitant]

REACTIONS (2)
  - DRUG ERUPTION [None]
  - FEBRILE NEUTROPENIA [None]
